FAERS Safety Report 8348858-8 (Version None)
Quarter: 2012Q2

REPORT INFORMATION
  Report Type: 
  Country: None (occurrence: None)
  Receive Date: 20120508
  Receipt Date: 20120502
  Transmission Date: 20120825
  Serious: No
  Sender: FDA-Public Use
  Company Number: ACO_30052_2012

PATIENT
  Age: 67 Year
  Sex: Female
  Weight: 68 kg

DRUGS (8)
  1. AMPYRA [Suspect]
     Indication: GAIT DISTURBANCE
     Dosage: 10 MG, BID, ORAL, 10 MG, BID, ORAL
     Route: 048
     Dates: start: 20100401
  2. SPIRONOLACTONE [Concomitant]
  3. MULTIVITAMIN /00831701/ (VITAMINS NOS) [Concomitant]
  4. HYDROCHLOROTHIAZIDE [Concomitant]
  5. NEURONTIN [Concomitant]
  6. VITAMIN C /00008001/ (ASCORBIC ACID) [Concomitant]
  7. CRESTOR [Concomitant]
  8. BACLOFEN [Concomitant]

REACTIONS (9)
  - DIZZINESS [None]
  - HEADACHE [None]
  - NECK PAIN [None]
  - PARAESTHESIA [None]
  - GAIT DISTURBANCE [None]
  - ASTHENIA [None]
  - BURNING SENSATION [None]
  - URINARY TRACT INFECTION [None]
  - CONSTIPATION [None]
